FAERS Safety Report 21730031 (Version 1)
Quarter: 2022Q4

REPORT INFORMATION
  Report Type: Spontaneous
  Country: IE (occurrence: IE)
  Receive Date: 20221214
  Receipt Date: 20221214
  Transmission Date: 20230113
  Serious: Yes (Life-Threatening, Hospitalization, Other)
  Sender: FDA-Public Use
  Company Number: None

PATIENT
  Age: 28 Year
  Sex: Male

DRUGS (4)
  1. PREGABALIN [Suspect]
     Active Substance: PREGABALIN
     Indication: Product used for unknown indication
     Dosage: PREGABALIN (G)
  2. METHADONE  (GENERIC) [Concomitant]
     Indication: Drug dependence
     Dosage: 60 MG
     Dates: start: 20220731
  3. LEVETIRACETAM [Concomitant]
     Active Substance: LEVETIRACETAM
     Indication: Epilepsy
     Dosage: 500 MILLIGRAM DAILY; 250 MG BD
  4. DIAZEPAM [Concomitant]
     Active Substance: DIAZEPAM
     Indication: Drug dependence
     Dosage: 5 MG QDS, UNIT DOSE : 5 MG,  FREQUENCY TIME :  6 HOURS

REACTIONS (5)
  - Intentional product use issue [Recovered/Resolved]
  - Prescription drug used without a prescription [Recovered/Resolved]
  - Accidental overdose [Recovered/Resolved]
  - Loss of consciousness [Recovered/Resolved]
  - Respiratory depression [Recovered/Resolved]

NARRATIVE: CASE EVENT DATE: 20221104
